FAERS Safety Report 5831484-X (Version None)
Quarter: 2008Q3

REPORT INFORMATION
  Report Type: 
  Country: None (occurrence: None)
  Receive Date: 20080801
  Receipt Date: 20080718
  Transmission Date: 20090109
  Serious: Yes (Other)
  Sender: FDA-Public Use
  Company Number: PE-GENENTECH-264783

PATIENT
  Age: 86 Year
  Sex: Female

DRUGS (4)
  1. LUCENTIS [Suspect]
     Indication: MACULAR DEGENERATION
     Dosage: 1 AMP, UNK
     Route: 031
     Dates: start: 20080701
  2. CILOXAN [Suspect]
     Indication: PROPHYLAXIS
     Dosage: UNK
     Route: 047
     Dates: start: 20080701
  3. XALATAN [Concomitant]
     Indication: DRUG USE FOR UNKNOWN INDICATION
  4. TIMOPTIC [Concomitant]
     Indication: DRUG USE FOR UNKNOWN INDICATION

REACTIONS (2)
  - SWELLING FACE [None]
  - TACHYCARDIA [None]
